FAERS Safety Report 8923747 (Version 1)
Quarter: 2012Q4

REPORT INFORMATION
  Report Type: 
  Country: US (occurrence: US)
  Receive Date: 20121126
  Receipt Date: 20121126
  Transmission Date: 20130627
  Serious: Yes (Hospitalization)
  Sender: FDA-Public Use
  Company Number: US-BAYER-2012-121486

PATIENT
  Age: 22 Year
  Sex: Female

DRUGS (10)
  1. YAZ [Suspect]
  2. YASMIN [Suspect]
  3. PROZAC [Concomitant]
     Dosage: 20 mg,daily
     Route: 048
  4. ZYRTEC [Concomitant]
     Dosage: 10 mg,daily
     Route: 048
  5. ALBUTEROL [Concomitant]
     Indication: SHORTNESS OF BREATH
     Dosage: P.R.N.
  6. DARVOCET-N [Concomitant]
  7. DILAUDID [Concomitant]
  8. XANAX [Concomitant]
     Indication: ANXIETY
  9. LEXAPRO [Concomitant]
  10. PROPOXYPHENE HCL AND ACETAMINOPHEN [Concomitant]
     Indication: PAIN

REACTIONS (1)
  - Deep vein thrombosis [None]
